FAERS Safety Report 5358470-0 (Version None)
Quarter: 2007Q2

REPORT INFORMATION
  Report Type: 
  Country: None (occurrence: None)
  Receive Date: 20070601
  Receipt Date: 20070416
  Transmission Date: 20071010
  Serious: No
  Sender: FDA-Public Use
  Company Number: US-1162633

PATIENT
  Age: 75 Year
  Sex: Female
  Weight: 53.0709 kg

DRUGS (2)
  1. NEVANAC [Suspect]
     Indication: PROPHYLAXIS
     Dosage: (OPHTHALMIC)
     Dates: start: 20070219, end: 20070411
  2. ECONOPRED [Concomitant]

REACTIONS (5)
  - ANTERIOR CHAMBER CELL [None]
  - CORNEAL OEDEMA [None]
  - EYE PAIN [None]
  - KERATITIS [None]
  - OCULAR DISCOMFORT [None]
